FAERS Safety Report 7623334-6 (Version None)
Quarter: 2011Q3

REPORT INFORMATION
  Report Type: 
  Country: None (occurrence: None)
  Receive Date: 20110720
  Receipt Date: 20110711
  Transmission Date: 20111222
  Serious: Yes (Other)
  Sender: FDA-Public Use
  Company Number: DK-JNJFOC-20110303687

PATIENT
  Sex: Female
  Weight: 20 kg

DRUGS (4)
  1. CONCERTA [Suspect]
     Route: 048
     Dates: start: 20090716, end: 20090901
  2. RITALIN [Suspect]
     Indication: ATTENTION DEFICIT/HYPERACTIVITY DISORDER
     Route: 048
     Dates: start: 20090501, end: 20090715
  3. CONCERTA [Suspect]
     Indication: ATTENTION DEFICIT/HYPERACTIVITY DISORDER
     Route: 048
     Dates: start: 20090301, end: 20100401
  4. METHYLPHENIDATE [Suspect]
     Indication: ATTENTION DEFICIT/HYPERACTIVITY DISORDER
     Route: 048
     Dates: start: 20081001, end: 20100406

REACTIONS (2)
  - WEIGHT GAIN POOR [None]
  - GROWTH RETARDATION [None]
